FAERS Safety Report 18923842 (Version 2)
Quarter: 2022Q2

REPORT INFORMATION
  Report Type: Spontaneous
  Country: CH (occurrence: CH)
  Receive Date: 20210222
  Receipt Date: 20220524
  Transmission Date: 20220721
  Serious: Yes (Life-Threatening, Hospitalization)
  Sender: FDA-Public Use
  Company Number: None

PATIENT
  Age: 28 Year
  Sex: Male

DRUGS (5)
  1. XARELTO [Suspect]
     Active Substance: RIVAROXABAN
     Indication: Product used for unknown indication
     Dosage: 20 MG, QD
     Route: 048
     Dates: start: 202006, end: 202102
  2. CLOZAPINE [Suspect]
     Active Substance: CLOZAPINE
     Dates: start: 202006, end: 202011
  3. RISPERIDONE [Concomitant]
     Active Substance: RISPERIDONE
     Indication: Mental disorder
     Dates: start: 202004, end: 202006
  4. OLANZAPINE [Concomitant]
     Active Substance: OLANZAPINE
     Dates: end: 2020
  5. SINTROM [Concomitant]
     Active Substance: ACENOCOUMAROL
     Dosage: 1 DF, QD
     Route: 048
     Dates: start: 20210220

REACTIONS (1)
  - Deep vein thrombosis [Recovering/Resolving]

NARRATIVE: CASE EVENT DATE: 20210101
